FAERS Safety Report 7832062-3 (Version None)
Quarter: 2011Q4

REPORT INFORMATION
  Report Type: 
  Country: None (occurrence: None)
  Receive Date: 20111022
  Receipt Date: 20111017
  Transmission Date: 20120403
  Serious: Yes (Other)
  Sender: FDA-Public Use
  Company Number: US-AMGEN-USASP2011053503

PATIENT
  Sex: Female

DRUGS (1)
  1. ENBREL [Suspect]
     Indication: RHEUMATOID ARTHRITIS
     Dosage: 50 MG, QWK
     Dates: start: 20090105, end: 20110801

REACTIONS (9)
  - BONE PAIN [None]
  - PAIN IN EXTREMITY [None]
  - UPPER EXTREMITY MASS [None]
  - NODULE [None]
  - MOBILITY DECREASED [None]
  - BEDRIDDEN [None]
  - SURGERY [None]
  - WEIGHT DECREASED [None]
  - RHEUMATOID ARTHRITIS [None]
